FAERS Safety Report 15983249 (Version 3)
Quarter: 2019Q1

REPORT INFORMATION
  Report Type: Report from Study
  Country: ZA (occurrence: ZA)
  Receive Date: 20190220
  Receipt Date: 20190304
  Transmission Date: 20190418
  Serious: No
  Sender: FDA-Public Use
  Company Number: PHHY2011ZA107551

PATIENT
  Sex: Female
  Weight: 45 kg

DRUGS (10)
  1. FOSAMAX [Suspect]
     Active Substance: ALENDRONATE SODIUM
     Indication: PRODUCT USED FOR UNKNOWN INDICATION
     Dosage: BEFORE FOR 14 MONTHS
     Route: 065
  2. CODEIN PHOSPHAS [Concomitant]
     Indication: PAIN
     Route: 065
  3. CORTISONE [Concomitant]
     Active Substance: CORTISONE\HYDROCORTISONE
     Indication: PRODUCT USED FOR UNKNOWN INDICATION
     Route: 065
  4. CALCIUM CARBONATE W/MAGNESIUM [Concomitant]
     Indication: PRODUCT USED FOR UNKNOWN INDICATION
     Route: 065
  5. ACLASTA [Suspect]
     Active Substance: ZOLEDRONIC ACID
     Indication: OSTEOPOROSIS
     Dosage: 1 DF, Q12MO
     Route: 042
     Dates: start: 2009
  6. ACLASTA [Suspect]
     Active Substance: ZOLEDRONIC ACID
     Dosage: 1 DF, Q12MO
     Route: 042
     Dates: start: 2010
  7. ACLASTA [Suspect]
     Active Substance: ZOLEDRONIC ACID
     Dosage: 1 DF, Q12MO
     Route: 042
     Dates: start: 20180227
  8. PANADO [Concomitant]
     Active Substance: ACETAMINOPHEN
     Indication: PRODUCT USED FOR UNKNOWN INDICATION
     Dosage: 2 DF, Q4H (2 TABLETS EVERY 4 HRS)
     Route: 065
  9. OMEGA 3 [Concomitant]
     Active Substance: OMEGA-3 FATTY ACIDS
     Indication: PRODUCT USED FOR UNKNOWN INDICATION
     Route: 065
  10. MEPROBAMATE. [Concomitant]
     Active Substance: MEPROBAMATE
     Indication: PAIN
     Route: 065

REACTIONS (20)
  - Oesophageal irritation [Unknown]
  - Headache [Not Recovered/Not Resolved]
  - Bladder disorder [Unknown]
  - Spinal pain [Unknown]
  - Alopecia [Not Recovered/Not Resolved]
  - Gait disturbance [Unknown]
  - Back pain [Unknown]
  - Erythema [Recovering/Resolving]
  - Bone pain [Unknown]
  - Drug intolerance [Not Recovered/Not Resolved]
  - Eructation [Unknown]
  - Malaise [Unknown]
  - Vomiting [Unknown]
  - Constipation [Unknown]
  - Balance disorder [Not Recovered/Not Resolved]
  - Vision blurred [Unknown]
  - Ulcer [Not Recovered/Not Resolved]
  - Nasal congestion [Unknown]
  - Presyncope [Unknown]
  - Pain in jaw [Unknown]

NARRATIVE: CASE EVENT DATE: 2011
